FAERS Safety Report 6839227-8 (Version None)
Quarter: 2010Q3

REPORT INFORMATION
  Report Type: 
  Country: None (occurrence: None)
  Receive Date: 20100708
  Receipt Date: 20100629
  Transmission Date: 20110219
  Serious: Yes (Other)
  Sender: FDA-Public Use
  Company Number: 005901

PATIENT
  Sex: Male
  Weight: 70.5 kg

DRUGS (6)
  1. CERTOLIZUMAB PEGOL (CDP870) [Suspect]
     Indication: RHEUMATOID ARTHRITIS
     Dosage: (400 MG 1X/2 WEEKS SUBCUTANEOUS), (200 MG 1X/2 WEEKS SUBCUTANEOUS)
     Route: 058
     Dates: start: 20051101, end: 20071211
  2. CERTOLIZUMAB PEGOL (CDP870) [Suspect]
     Indication: RHEUMATOID ARTHRITIS
     Dosage: (400 MG 1X/2 WEEKS SUBCUTANEOUS), (200 MG 1X/2 WEEKS SUBCUTANEOUS)
     Route: 058
     Dates: start: 20071225, end: 20100121
  3. METHOTREXATE [Concomitant]
  4. FOLIC ACID [Concomitant]
  5. ISONIAZID [Concomitant]
  6. PYRIDOXIN [Concomitant]

REACTIONS (1)
  - MALIGNANT MELANOMA [None]
